FAERS Safety Report 5248707-0 (Version None)
Quarter: 2007Q1

REPORT INFORMATION
  Report Type: 
  Country: None (occurrence: None)
  Receive Date: 20070222
  Receipt Date: 20070208
  Transmission Date: 20070707
  Serious: Yes (Hospitalization)
  Sender: FDA-Public Use
  Company Number: 236348

PATIENT
  Age: 75 Year
  Sex: Male
  Weight: 89 kg

DRUGS (13)
  1. AVASTIN [Suspect]
     Indication: DRUG USE FOR UNKNOWN INDICATION
     Dosage: 15 MG/M2, Q3W, INTRAVENOUS
     Route: 042
     Dates: start: 20070110
  2. OXALIPLATIN [Suspect]
     Indication: NON-SMALL CELL LUNG CANCER
     Dosage: 100 MG/M2, Q3W, INTRAVENOUS
     Route: 042
     Dates: start: 20070110
  3. DOCETAXEK (DOCETAXEL) [Suspect]
     Indication: DRUG USE FOR UNKNOWN INDICATION
     Dosage: 70 MG/M2, Q3W, INTRAVENOUS
     Route: 042
     Dates: start: 20070110
  4. HYDROMORPHONE (HYDROMORPHONE HYDROCHLORIDE) [Concomitant]
  5. FENTANYL CITRATE [Concomitant]
  6. GUAIFENESIN [Concomitant]
  7. PROMETHAZINE HYDROCHLORIDE TAB [Concomitant]
  8. HYDROCODONE BITARTRATE (HYDROCODONE BITARTRATE) [Concomitant]
  9. LORAZEPAM [Concomitant]
  10. LEVOFLOXACIN [Concomitant]
  11. DEXAMETHASONE TAB [Concomitant]
  12. SENNA FRUIT (SENNA) [Concomitant]
  13. ALPRAZOLAM [Concomitant]

REACTIONS (7)
  - ASTHENIA [None]
  - BONE MARROW FAILURE [None]
  - DEEP VEIN THROMBOSIS [None]
  - DIARRHOEA [None]
  - HYPERHIDROSIS [None]
  - PYREXIA [None]
  - RASH PUSTULAR [None]
